FAERS Safety Report 4899758-7 (Version None)
Quarter: 2006Q1

REPORT INFORMATION
  Report Type: 
  Country: None (occurrence: None)
  Receive Date: 20060131
  Receipt Date: 20060120
  Transmission Date: 20060701
  Serious: Yes (Other)
  Sender: FDA-Public Use
  Company Number: 2006012539

PATIENT
  Age: 37 Year
  Sex: Female
  Weight: 113.3993 kg

DRUGS (4)
  1. ZOLOFT [Suspect]
     Indication: DEPRESSION
     Dosage: 200 MG (200 MG, 1 IN 1 D),
  2. VALIUM [Concomitant]
  3. DEPAKOTE [Concomitant]
  4. NEXIUM [Concomitant]

REACTIONS (13)
  - CAESAREAN SECTION [None]
  - DRUG EXPOSURE DURING PREGNANCY [None]
  - MENSTRUAL DISORDER [None]
  - METRORRHAGIA [None]
  - MIGRAINE [None]
  - OVARIAN CYST [None]
  - PAIN [None]
  - PANIC ATTACK [None]
  - PREGNANCY [None]
  - UMBILICAL CORD AROUND NECK [None]
  - UTERINE CYST [None]
  - UTERINE LEIOMYOMA [None]
  - VOMITING IN PREGNANCY [None]
